FAERS Safety Report 7877014 (Version 2)
Quarter: 2012Q4

REPORT INFORMATION
  Report Type: 
  Country: US (occurrence: US)
  Receive Date: 20110329
  Receipt Date: 20120829
  Transmission Date: 20130627
  Serious: No
  Sender: FDA-Public Use
  Company Number: US-BAYER-2011-023932

PATIENT
  Age: 24 Year
  Sex: Female

DRUGS (1)
  1. MIRENA [Suspect]
     Indication: CONTRACEPTION
     Dosage: 20 ?g, CONT
     Route: 015
     Dates: start: 20070608

REACTIONS (3)
  - Pregnancy test positive [None]
  - Device expulsion [None]
  - Amenorrhoea [None]
